FAERS Safety Report 9718387 (Version 1)
Quarter: 2013Q4

REPORT INFORMATION
  Report Type: Spontaneous
  Country: US (occurrence: US)
  Receive Date: 20131125
  Receipt Date: 20131125
  Transmission Date: 20140711
  Serious: No
  Sender: FDA-Public Use
  Company Number: US-VIVUS-2013V1000548

PATIENT
  Age: 54 Year
  Sex: Female

DRUGS (1)
  1. QSYMIA 3.75MG/23MG [Suspect]
     Indication: OBESITY
     Route: 048
     Dates: start: 20130710, end: 20130720

REACTIONS (11)
  - Abnormal behaviour [Unknown]
  - Hypohidrosis [Unknown]
  - Hot flush [Unknown]
  - Gingival ulceration [Unknown]
  - Tongue ulceration [Unknown]
  - Middle insomnia [Unknown]
  - Crying [Unknown]
  - Irritability [Unknown]
  - Anxiety [Unknown]
  - Headache [Unknown]
  - Dizziness [Unknown]
